FAERS Safety Report 4728198-6 (Version None)
Quarter: 2005Q3

REPORT INFORMATION
  Report Type: 
  Country: None (occurrence: None)
  Receive Date: 20050727
  Receipt Date: 20050715
  Transmission Date: 20060218
  Serious: Yes (Hospitalization, Other)
  Sender: FDA-Public Use
  Company Number: HQWYE276619JUL05

PATIENT
  Age: 68 Year
  Sex: Female

DRUGS (1)
  1. OSTELUC 200                            (ETODOLAC) [Suspect]
     Indication: SPINAL COLUMN STENOSIS
     Dosage: 400 MG 1X PER 1 DAY
     Route: 048
     Dates: start: 20010705, end: 20020405

REACTIONS (1)
  - LIVER DISORDER [None]
